FAERS Safety Report 4727148-6 (Version None)
Quarter: 2005Q3

REPORT INFORMATION
  Report Type: 
  Country: None (occurrence: None)
  Receive Date: 20050726
  Receipt Date: 20031201
  Transmission Date: 20060218
  Serious: Yes (Hospitalization)
  Sender: FDA-Public Use
  Company Number: 04UK 0114

PATIENT
  Sex: Male

DRUGS (3)
  1. AGGRASTAT [Suspect]
     Indication: MYOCARDIAL INFARCTION
  2. AGGRASTAT [Suspect]
     Dosage: INTRAVENOUS
     Route: 042
  3. HEPARIN [Concomitant]

REACTIONS (1)
  - HAEMORRHAGE [None]
